FAERS Safety Report 14759302 (Version 1)
Quarter: 2018Q2

REPORT INFORMATION
  Report Type: Spontaneous
  Country: US (occurrence: US)
  Receive Date: 20180413
  Receipt Date: 20180413
  Transmission Date: 20180711
  Serious: No
  Sender: FDA-Public Use
  Company Number: US-NOVOPROD-589346

PATIENT
  Age: 75 Year
  Sex: Female
  Weight: 76.19 kg

DRUGS (2)
  1. TRESIBA FLEXTOUCH U200 [Suspect]
     Active Substance: INSULIN DEGLUDEC
     Indication: DIABETES MELLITUS
     Dosage: 33-35 UNITS QD
     Route: 058
     Dates: start: 201802, end: 201802
  2. TRESIBA FLEXTOUCH U200 [Suspect]
     Active Substance: INSULIN DEGLUDEC
     Dosage: 28 U, QD IN THE MORNING
     Route: 058
     Dates: start: 201802, end: 2018

REACTIONS (6)
  - Drug effect faster than expected [Unknown]
  - Drug effect delayed [Unknown]
  - Drug prescribing error [Recovered/Resolved]
  - Blood glucose decreased [Recovered/Resolved]
  - Blood glucose decreased [Recovered/Resolved]
  - Blood glucose increased [Recovering/Resolving]

NARRATIVE: CASE EVENT DATE: 2018
